FAERS Safety Report 9969958 (Version 1)
Quarter: 2014Q1

REPORT INFORMATION
  Report Type: Spontaneous
  Country: FR (occurrence: FR)
  Receive Date: 20140306
  Receipt Date: 20140306
  Transmission Date: 20141002
  Serious: Yes (Life-Threatening, Hospitalization)
  Sender: FDA-Public Use
  Company Number: FR-ORION CORPORATION ORION PHARMA-ENTC2014-0086

PATIENT
  Age: 61 Year
  Sex: Female

DRUGS (6)
  1. STALEVO [Suspect]
     Indication: PARKINSON^S DISEASE
     Dosage: 94 TABLETS OF 150/37.5/200 MG AND 100 TABLETS OF 125/31.25/200 MG
     Route: 048
     Dates: end: 20131025
  2. MODOPAR [Suspect]
     Indication: PARKINSON^S DISEASE
     Dosage: STRENGTH: 125 MG
     Route: 048
     Dates: end: 20131025
  3. CLOZAPINE [Suspect]
     Indication: PARKINSON^S DISEASE
     Dosage: STRENGTH: 25 MG
     Route: 048
  4. SIFROL LP [Suspect]
     Indication: PARKINSON^S DISEASE
     Dosage: STRENGTH: 0.26 MG
     Route: 048
     Dates: end: 20131028
  5. CELECTOL [Suspect]
     Indication: HYPERTENSION
     Dosage: STRENGTH: 200 MG
     Route: 048
     Dates: end: 20131025
  6. IDARAC [Suspect]
     Indication: PAIN
     Dosage: STRENGTH: 200 MG
     Route: 048
     Dates: end: 20131025

REACTIONS (4)
  - Intentional overdose [Recovered/Resolved]
  - Coma [Recovered/Resolved]
  - Cardiovascular insufficiency [Recovered/Resolved]
  - Agitation [Recovered/Resolved]
